FAERS Safety Report 5794819-2 (Version None)
Quarter: 2008Q2

REPORT INFORMATION
  Report Type: 
  Country: None (occurrence: None)
  Receive Date: 20080627
  Receipt Date: 20080627
  Transmission Date: 20081010
  Serious: Yes (Hospitalization)
  Sender: FDA-Public Use
  Company Number: None

PATIENT
  Age: 84 Year
  Sex: Male
  Weight: 95 kg

DRUGS (1)
  1. PROPOFOL [Suspect]
     Dosage: 40 MG ONCE IV
     Route: 042
     Dates: start: 20071127, end: 20071127

REACTIONS (1)
  - HYPOTENSION [None]
